FAERS Safety Report 9721139 (Version 1)
Quarter: 2013Q4

REPORT INFORMATION
  Report Type: Spontaneous
  Country: US (occurrence: US)
  Receive Date: 20131129
  Receipt Date: 20131129
  Transmission Date: 20140711
  Serious: No
  Sender: FDA-Public Use
  Company Number: US-PFIZER INC-2013337840

PATIENT
  Age: 88 Year
  Sex: Female

DRUGS (3)
  1. SONATA [Suspect]
     Indication: SLEEP DISORDER
     Dosage: 10 MG, AS NEEDED (ONE OR TWO TABLET DURING BED TIME)
     Route: 048
     Dates: start: 2010
  2. EXFORGE [Concomitant]
     Indication: HYPERTENSION
     Dosage: AMLODIPINE BESYLATE 10MG/ VALSARTAN 320MG, DAILY
  3. LIPITOR [Concomitant]
     Indication: BLOOD CHOLESTEROL ABNORMAL
     Dosage: 20 MG, DAILY

REACTIONS (2)
  - Drug ineffective [Unknown]
  - Product quality issue [Unknown]
